FAERS Safety Report 9707346 (Version 1)
Quarter: 2013Q4

REPORT INFORMATION
  Report Type: Spontaneous
  Country: US (occurrence: US)
  Receive Date: 20131125
  Receipt Date: 20131125
  Transmission Date: 20140711
  Serious: No
  Sender: FDA-Public Use
  Company Number: US-GLAXOSMITHKLINE-A1025059A

PATIENT
  Age: 72 Year
  Sex: Female

DRUGS (5)
  1. ADVAIR [Suspect]
     Indication: CHRONIC OBSTRUCTIVE PULMONARY DISEASE
     Dosage: 1PUFF TWICE PER DAY
     Route: 055
     Dates: start: 201005
  2. FLOVENT [Suspect]
     Indication: CHRONIC OBSTRUCTIVE PULMONARY DISEASE
     Route: 055
  3. SPIRIVA [Concomitant]
  4. OXYGEN [Concomitant]
  5. POTASSIUM [Concomitant]

REACTIONS (9)
  - Palpitations [Recovering/Resolving]
  - Dehydration [Recovering/Resolving]
  - Dysuria [Recovering/Resolving]
  - Musculoskeletal stiffness [Recovering/Resolving]
  - Fluid retention [Recovering/Resolving]
  - Muscle spasms [Recovering/Resolving]
  - Insomnia [Recovering/Resolving]
  - Onychoclasis [Recovering/Resolving]
  - Overdose [Unknown]
